FAERS Safety Report 7900442-3 (Version None)
Quarter: 2011Q4

REPORT INFORMATION
  Report Type: 
  Country: None (occurrence: None)
  Receive Date: 20111108
  Receipt Date: 20111030
  Transmission Date: 20120403
  Serious: Yes (Other)
  Sender: FDA-Public Use
  Company Number: IT-JNJFOC-20111101469

PATIENT
  Age: 22 Year
  Sex: Male

DRUGS (5)
  1. LEVOBREN [Suspect]
     Indication: SELF INJURIOUS BEHAVIOUR
     Dosage: 10 TABLETS OF LEVOSULPIRIDE (TABLETS, 25 MG),
     Route: 048
  2. ALPRAZOLAM [Suspect]
     Indication: SELF INJURIOUS BEHAVIOUR
     Dosage: 5 TABLETS OF ALPRAZOLAM (TABLETS, 0.25 MG
     Route: 048
  3. ALCOHOL [Suspect]
     Indication: SELF INJURIOUS BEHAVIOUR
     Route: 065
  4. HALDOL [Suspect]
     Indication: SELF INJURIOUS BEHAVIOUR
     Dosage: 0.2%
     Route: 048
  5. ANAFRANIL [Suspect]
     Indication: SELF INJURIOUS BEHAVIOUR
     Dosage: 5 TABLETS OF CLOMIPRAMINE HYDROCHLORIDE (TABLETS, 25 MG)
     Route: 048

REACTIONS (4)
  - VOMITING [None]
  - SOPOR [None]
  - SLUGGISHNESS [None]
  - MULTIPLE DRUG OVERDOSE INTENTIONAL [None]
